FAERS Safety Report 4831320-4 (Version None)
Quarter: 2005Q4

REPORT INFORMATION
  Report Type: 
  Country: None (occurrence: None)
  Receive Date: 20051114
  Receipt Date: 20051028
  Transmission Date: 20060501
  Serious: Yes (Hospitalization)
  Sender: FDA-Public Use
  Company Number: 215444

PATIENT
  Age: 29 Year
  Sex: Female

DRUGS (7)
  1. XOLAIR [Suspect]
     Indication: ASTHMA
     Dosage: UNK, 2/WEEK, SUBCUTANEOUS
     Route: 058
     Dates: start: 20041106
  2. ANTIBIOTIC (ANITBIOTICS NOS) [Concomitant]
  3. BRONCHODILATOR (BRONCHODILATOR NOS) [Concomitant]
  4. FLIXOTIDE (FLUTICASONE PROPIONATE) [Concomitant]
  5. FORMOTEROL (FORMOTEROL FUMARATE) [Concomitant]
  6. STEROIDS (UNK INGREDIENTS) (STEROIDS NOS) [Concomitant]
  7. TIOTROPIUM (TIOTROPIUM BROMIDE) [Concomitant]

REACTIONS (43)
  - ABDOMINAL DISTENSION [None]
  - ANTIPHOSPHOLIPID ANTIBODIES POSITIVE [None]
  - ASTHMA [None]
  - BRADYCARDIA [None]
  - CATHETER RELATED COMPLICATION [None]
  - CATHETER SITE INFLAMMATION [None]
  - CONDITION AGGRAVATED [None]
  - DEPRESSED LEVEL OF CONSCIOUSNESS [None]
  - DIARRHOEA [None]
  - DISEASE RECURRENCE [None]
  - DRUG INEFFECTIVE [None]
  - DRUG INTERACTION [None]
  - DRUG RESISTANCE [None]
  - DRUG SPECIFIC ANTIBODY PRESENT [None]
  - DRY SKIN [None]
  - DYSPHONIA [None]
  - FALL [None]
  - FEELING ABNORMAL [None]
  - GASTROENTERITIS [None]
  - GENERAL PHYSICAL HEALTH DETERIORATION [None]
  - HYPOGLYCAEMIA [None]
  - HYPOXIA [None]
  - INFLUENZA LIKE ILLNESS [None]
  - JUGULAR VEIN THROMBOSIS [None]
  - LOCALISED INFECTION [None]
  - MALAISE [None]
  - MIDDLE INSOMNIA [None]
  - NAUSEA [None]
  - NEUTROPENIA [None]
  - OBSTRUCTIVE AIRWAYS DISORDER [None]
  - PROTEIN S DECREASED [None]
  - PROTEIN S DEFICIENCY [None]
  - PULMONARY EMBOLISM [None]
  - PULMONARY INFARCTION [None]
  - RASH PUSTULAR [None]
  - RHINITIS ALLERGIC [None]
  - RHINORRHOEA [None]
  - SINUSITIS [None]
  - SOMNOLENCE [None]
  - STAPHYLOCOCCAL INFECTION [None]
  - SUBCLAVIAN VEIN THROMBOSIS [None]
  - URTICARIA [None]
  - VOMITING [None]
